FAERS Safety Report 8440212-3 (Version None)
Quarter: 2012Q2

REPORT INFORMATION
  Report Type: 
  Country: None (occurrence: None)
  Receive Date: 20120615
  Receipt Date: 20120604
  Transmission Date: 20120825
  Serious: No
  Sender: FDA-Public Use
  Company Number: US-PFIZER INC-2012118668

PATIENT
  Sex: Female
  Weight: 61.2 kg

DRUGS (8)
  1. PREMARIN [Suspect]
     Dosage: UNK, 3X/WEEK
     Route: 067
     Dates: start: 20120301, end: 20120101
  2. LOVASTATIN [Concomitant]
     Dosage: UNK, 1X/DAY
  3. PRILOSEC [Concomitant]
     Dosage: 20 MG, 1X/DAY
  4. LISINOPRIL [Concomitant]
     Indication: HYPERTENSION
     Dosage: UNK, 1X/DAY
  5. ASPIRIN [Concomitant]
     Dosage: UNK, 1X/DAY
  6. HYDROCHLOROTHIAZIDE [Concomitant]
     Dosage: 12.5 MG, 1X/DAY
  7. PREMARIN [Suspect]
     Indication: VAGINAL DISORDER
     Dosage: UNK, 1X/DAY
     Route: 067
     Dates: start: 20120302, end: 20120515
  8. PREMARIN [Suspect]
     Dosage: UNSPECIFIED DOSE EVERY 8 DAYS OR 9 DAYS
     Route: 067
     Dates: start: 20120101, end: 20120315

REACTIONS (6)
  - RASH [None]
  - VAGINAL ODOUR [None]
  - FEELING ABNORMAL [None]
  - DRUG INTOLERANCE [None]
  - NAUSEA [None]
  - MALAISE [None]
